FAERS Safety Report 13477110 (Version 5)
Quarter: 2019Q2

REPORT INFORMATION
  Report Type: Report from Study
  Country: CA (occurrence: CA)
  Receive Date: 20170425
  Receipt Date: 20190401
  Transmission Date: 20190711
  Serious: Yes (Hospitalization, Other)
  Sender: FDA-Public Use
  Company Number: CA-OTSUKA-2017_009189

PATIENT
  Age: 69 Year
  Sex: Male
  Weight: 91 kg

DRUGS (44)
  1. LYRICA [Concomitant]
     Active Substance: PREGABALIN
     Dosage: 75 MG, BID
     Route: 048
     Dates: start: 20170421, end: 20170505
  2. FAMVIR [Concomitant]
     Active Substance: FAMCICLOVIR
     Dosage: 250 MG, BID
     Route: 048
     Dates: start: 20170421, end: 20170505
  3. DOCUSATE [Concomitant]
     Active Substance: DOCUSATE
     Dosage: 100 MG, BID
     Route: 048
     Dates: start: 20170419, end: 20170421
  4. PANTOLOC [Concomitant]
     Active Substance: PANTOPRAZOLE SODIUM
     Dosage: 40 MG, QD
     Route: 048
     Dates: start: 20170419, end: 20170421
  5. ASA [Concomitant]
     Active Substance: ASPIRIN
     Indication: PROPHYLAXIS
     Dosage: 81 MG, QD
     Route: 048
     Dates: start: 20130626
  6. EURO-K20 [Concomitant]
     Dosage: 20 MMOL, PRN
     Route: 042
     Dates: start: 20170503, end: 20170505
  7. EURO-K20 [Concomitant]
     Dosage: 20 MMOL, PRN
     Route: 042
     Dates: start: 20170503, end: 20170505
  8. PANTOLOC [Concomitant]
     Active Substance: PANTOPRAZOLE SODIUM
     Dosage: 40 MG, (PRN)
     Route: 048
     Dates: start: 20170420, end: 20170420
  9. EURO-K20 [Concomitant]
     Dosage: 20 MMOL, BID
     Route: 048
     Dates: start: 20170419, end: 20170421
  10. EURO-K20 [Concomitant]
     Dosage: 10 MMOL, PRN
     Route: 048
     Dates: start: 20170421, end: 20170503
  11. ROSUVASTATIN. [Concomitant]
     Active Substance: ROSUVASTATIN
     Indication: HYPERCHOLESTEROLAEMIA
     Dosage: 10 MG, QD
     Route: 048
     Dates: start: 2003
  12. ATIVAN [Concomitant]
     Active Substance: LORAZEPAM
     Dosage: 1 MG, QD
     Route: 048
     Dates: start: 20170421, end: 20170425
  13. PANTOLOC [Concomitant]
     Active Substance: PANTOPRAZOLE SODIUM
     Dosage: 40 MG, QD
     Route: 048
     Dates: start: 20170421, end: 20170423
  14. ASA [Concomitant]
     Active Substance: ASPIRIN
     Dosage: 80 MG, (PRN)
     Route: 048
     Dates: start: 20170420, end: 20170420
  15. EURO-K20 [Concomitant]
     Indication: HYPOKALAEMIA
     Dosage: UNK
     Route: 048
     Dates: start: 20150319
  16. EURO-K20 [Concomitant]
     Dosage: 20 MMOL, PRN
     Route: 048
     Dates: start: 20170420, end: 20170420
  17. EURO-K20 [Concomitant]
     Dosage: 20 MMOL, PRN
     Route: 048
     Dates: start: 20170505, end: 20170505
  18. CITALOPRAM [Concomitant]
     Active Substance: CITALOPRAM HYDROBROMIDE
     Indication: PRODUCT USED FOR UNKNOWN INDICATION
     Dosage: 5 MG, QD  QAM (EVERY MORNING)
     Route: 048
     Dates: start: 20170910
  19. CITALOPRAM [Concomitant]
     Active Substance: CITALOPRAM HYDROBROMIDE
     Dosage: 15 MG, QD QHS (EACH NIGHT BEFORE SLEEP).
     Route: 048
     Dates: start: 20170910
  20. LENALIDOMIDE [Suspect]
     Active Substance: LENALIDOMIDE
     Indication: STEM CELL TRANSPLANT
     Dosage: 10 MG, QD
     Route: 048
     Dates: start: 20141010, end: 20150415
  21. LYRICA [Concomitant]
     Active Substance: PREGABALIN
     Dosage: 75 MG, BID
     Route: 048
     Dates: start: 20170419, end: 20170421
  22. DOCUSATE [Concomitant]
     Active Substance: DOCUSATE
     Dosage: 100 MG, BID
     Route: 048
     Dates: start: 20170429, end: 20170505
  23. EURO-K20 [Concomitant]
     Dosage: 10 MMOL, PRN
     Route: 042
     Dates: start: 20170421, end: 20170503
  24. EURO-K20 [Concomitant]
     Dosage: 10 MMOL, PRN
     Route: 065
     Dates: start: 20170421, end: 20170503
  25. ROSUVASTATIN. [Concomitant]
     Active Substance: ROSUVASTATIN
     Dosage: 10 MG, QD
     Route: 048
     Dates: start: 20170419, end: 20170421
  26. BUSULFAN. [Suspect]
     Active Substance: BUSULFAN
     Indication: STEM CELL TRANSPLANT
     Dosage: 280 MG, QD (Q 24HR?3 DAYS)
     Route: 042
     Dates: start: 20140625, end: 20140627
  27. LYRICA [Concomitant]
     Active Substance: PREGABALIN
     Dosage: 75 MG,PRN
     Route: 048
     Dates: start: 20170420, end: 20170420
  28. EURO-K20 [Concomitant]
     Dosage: 20 MMOL, PRN
     Route: 042
     Dates: start: 20170502, end: 20170502
  29. MAGNESIUM [Concomitant]
     Active Substance: MAGNESIUM
     Indication: HYPOMAGNESAEMIA
     Dosage: 250 MG, BID
     Route: 048
     Dates: start: 20140819
  30. MELPHALAN. [Suspect]
     Active Substance: MELPHALAN
     Indication: STEM CELL TRANSPLANT
     Dosage: 310 MG, SINGLE
     Route: 042
     Dates: start: 20140628, end: 20150506
  31. PANTOLOC [Concomitant]
     Active Substance: PANTOPRAZOLE SODIUM
     Dosage: 40 MG, BID
     Route: 048
     Dates: start: 20170423, end: 20170505
  32. ASA [Concomitant]
     Active Substance: ASPIRIN
     Dosage: 80 MG, QD
     Route: 048
     Dates: start: 20170421, end: 20170505
  33. FAMVIR [Concomitant]
     Active Substance: FAMCICLOVIR
     Indication: ANTIVIRAL PROPHYLAXIS
     Dosage: 250 MG, BID
     Route: 048
     Dates: start: 20140910
  34. ATIVAN [Concomitant]
     Active Substance: LORAZEPAM
     Indication: INSOMNIA
     Dosage: 1 MG, QD (QHS,PRN)
     Route: 048
     Dates: start: 20140131
  35. ATIVAN [Concomitant]
     Active Substance: LORAZEPAM
     Dosage: 1 MG, QD
     Route: 048
     Dates: start: 20170425, end: 20170505
  36. EURO-K20 [Concomitant]
     Dosage: 20 MMOL, PRN
     Route: 065
     Dates: start: 20170503, end: 20170505
  37. EURO-K20 [Concomitant]
     Dosage: 10 MMOL, PRN
     Route: 042
     Dates: start: 20170421, end: 20170503
  38. ROSUVASTATIN. [Concomitant]
     Active Substance: ROSUVASTATIN
     Dosage: 10 MG, QD
     Route: 048
     Dates: start: 20170421, end: 20170505
  39. LYRICA [Concomitant]
     Active Substance: PREGABALIN
     Indication: NEURALGIA
     Dosage: 75 MG, BID
     Route: 048
     Dates: start: 2013
  40. DOCUSATE [Concomitant]
     Active Substance: DOCUSATE
     Indication: FAECES HARD
     Dosage: 100 MG, QD
     Route: 048
     Dates: start: 2010
  41. ATIVAN [Concomitant]
     Active Substance: LORAZEPAM
     Dosage: 1 MG, QD
     Route: 048
     Dates: start: 20170419, end: 20170421
  42. PANTOLOC [Concomitant]
     Active Substance: PANTOPRAZOLE SODIUM
     Indication: GASTROOESOPHAGEAL REFLUX DISEASE
     Dosage: 40 MG, QD
     Route: 048
     Dates: start: 20160413
  43. ASA [Concomitant]
     Active Substance: ASPIRIN
     Dosage: 80 MG, QD
     Route: 048
     Dates: start: 20170419, end: 20170421
  44. M ESLON [Concomitant]
     Active Substance: MORPHINE SULFATE
     Indication: PAIN MANAGEMENT
     Dosage: 10 MG, BID (Q12HRS)
     Route: 048
     Dates: start: 20140910

REACTIONS (2)
  - Diffuse large B-cell lymphoma [Recovered/Resolved]
  - Second primary malignancy [Recovered/Resolved]

NARRATIVE: CASE EVENT DATE: 20170419
